FAERS Safety Report 4318583-9 (Version None)
Quarter: 2004Q1

REPORT INFORMATION
  Report Type: 
  Country: None (occurrence: None)
  Receive Date: 20040318
  Receipt Date: 20040309
  Transmission Date: 20041129
  Serious: Yes (Hospitalization, Other)
  Sender: FDA-Public Use
  Company Number: PHEH2004US02852

PATIENT
  Sex: Male

DRUGS (2)
  1. CLOZARIL [Suspect]
     Indication: SCHIZOAFFECTIVE DISORDER
     Dosage: UNK,UNK
     Route: 048
  2. RISPERIDONE [Concomitant]

REACTIONS (3)
  - CATATONIA [None]
  - LEUKOPENIA [None]
  - PYREXIA [None]
